FAERS Safety Report 13425872 (Version 2)
Quarter: 2017Q2

REPORT INFORMATION
  Report Type: Spontaneous
  Country: US (occurrence: US)
  Receive Date: 20170411
  Receipt Date: 20170508
  Transmission Date: 20170830
  Serious: No
  Sender: FDA-Public Use
  Company Number: US-JNJFOC-20070804904

PATIENT
  Age: 53 Year
  Sex: Female
  Weight: 73.03 kg

DRUGS (1)
  1. FENTANYL TRANSDERMAL SYSTEM [Suspect]
     Active Substance: FENTANYL
     Indication: BACK PAIN
     Route: 062
     Dates: start: 200608, end: 200707

REACTIONS (7)
  - Application site irritation [Unknown]
  - Application site discolouration [Unknown]
  - Application site rash [Recovered/Resolved]
  - Multiple allergies [Unknown]
  - Therapeutic response unexpected [Unknown]
  - Product quality issue [Recovered/Resolved]
  - Burning sensation [Recovered/Resolved]

NARRATIVE: CASE EVENT DATE: 200608
